FAERS Safety Report 6219255-6 (Version None)
Quarter: 2009Q2

REPORT INFORMATION
  Report Type: 
  Country: None (occurrence: None)
  Receive Date: 20090605
  Receipt Date: 20090605
  Transmission Date: 20091009
  Serious: Yes (Life-Threatening)
  Sender: FDA-Public Use
  Company Number: None

PATIENT
  Age: 46 Year
  Sex: Female
  Weight: 117.9352 kg

DRUGS (1)
  1. SAVELLA [Suspect]
     Indication: FIBROMYALGIA
     Dosage: 12.5 MG - 50MG PER STARTER PAK IN 12 DOSES

REACTIONS (4)
  - CYANOSIS [None]
  - HYPOAESTHESIA [None]
  - PARAESTHESIA [None]
  - WEIGHT INCREASED [None]
